FAERS Safety Report 21797554 (Version 1)
Quarter: 2022Q4

REPORT INFORMATION
  Report Type: Spontaneous
  Country: DE (occurrence: DE)
  Receive Date: 20221230
  Receipt Date: 20221230
  Transmission Date: 20230113
  Serious: Yes (Death, Other)
  Sender: FDA-Public Use
  Company Number: DE-SUN PHARMACEUTICAL INDUSTRIES LTD-2022R1-370650

PATIENT
  Age: 21 Year
  Sex: Male
  Weight: 84 kg

DRUGS (6)
  1. MORPHINE [Suspect]
     Active Substance: MORPHINE
     Indication: Product used for unknown indication
     Dosage: 0.13 UG/ML
     Route: 065
  2. CODEINE [Suspect]
     Active Substance: CODEINE
     Indication: Product used for unknown indication
     Dosage: 0.23 UG/ML
     Route: 065
  3. CLONAZOLAM [Suspect]
     Active Substance: CLONAZOLAM
     Indication: Product used for unknown indication
     Dosage: 2.08 MG/L
     Route: 065
  4. CUMYL-4CN-BINACA [Suspect]
     Active Substance: CUMYL-4CN-BINACA
     Indication: Product used for unknown indication
     Dosage: 0.01 MG/L
     Route: 065
  5. FLUALPRAZOLAM [Suspect]
     Active Substance: FLUALPRAZOLAM
     Indication: Product used for unknown indication
     Dosage: 0.74 MG/L
     Route: 065
  6. THEBAINE [Suspect]
     Active Substance: THEBAINE
     Indication: Product used for unknown indication
     Dosage: 0.81 MG/L
     Route: 065

REACTIONS (1)
  - Drug abuse [Fatal]
